FAERS Safety Report 14378247 (Version 4)
Quarter: 2018Q3

REPORT INFORMATION
  Report Type: Report from Study
  Country: US (occurrence: US)
  Receive Date: 20180111
  Receipt Date: 20180928
  Transmission Date: 20181010
  Serious: Yes (Death, Life-Threatening, Hospitalization, Other)
  Sender: FDA-Public Use
  Company Number: US-ACTELION-A-NJ2017-164481

PATIENT
  Age: 62 Year
  Sex: Male

DRUGS (2)
  1. OPSUMIT [Suspect]
     Active Substance: MACITENTAN
     Indication: PULMONARY ARTERIAL HYPERTENSION
     Dosage: 10 MG, QD
     Route: 048
     Dates: start: 20150804, end: 20180915
  2. SILDENAFIL. [Concomitant]
     Active Substance: SILDENAFIL
     Dosage: 20 MG, TID
     Dates: start: 20161115, end: 20180915

REACTIONS (10)
  - Peripheral swelling [Unknown]
  - Cellulitis [Not Recovered/Not Resolved]
  - Abdominal distension [Unknown]
  - Bacterial infection [Unknown]
  - Skin graft [Unknown]
  - Death [Fatal]
  - Osteomyelitis [Unknown]
  - Weight decreased [Unknown]
  - Coronary arterial stent insertion [Unknown]
  - Cardiac failure congestive [Unknown]

NARRATIVE: CASE EVENT DATE: 201712
